FAERS Safety Report 21594918 (Version 1)
Quarter: 2022Q4

REPORT INFORMATION
  Report Type: Spontaneous
  Country: TW (occurrence: TW)
  Receive Date: 20221115
  Receipt Date: 20221115
  Transmission Date: 20230112
  Serious: Yes (Hospitalization, Other)
  Sender: FDA-Public Use
  Company Number: TW-PFIZER INC-PV202200100933

PATIENT
  Age: 73 Year
  Sex: Female

DRUGS (1)
  1. XELJANZ [Suspect]
     Active Substance: TOFACITINIB CITRATE
     Indication: Rheumatoid arthritis
     Dosage: 5 MG, 2X/DAY
     Route: 048
     Dates: start: 20201104

REACTIONS (3)
  - Melaena [Recovered/Resolved]
  - Portal hypertensive gastropathy [Recovered/Resolved]
  - Varices oesophageal [Recovered/Resolved]

NARRATIVE: CASE EVENT DATE: 20221028
